FAERS Safety Report 4338196-2 (Version None)
Quarter: 2004Q2

REPORT INFORMATION
  Report Type: 
  Country: None (occurrence: None)
  Receive Date: 20040409
  Receipt Date: 20040406
  Transmission Date: 20050107
  Serious: Yes (Other)
  Sender: FDA-Public Use
  Company Number: 2004-01-0258

PATIENT
  Age: 66 Year
  Sex: Male
  Weight: 53 kg

DRUGS (15)
  1. INTRON A [Suspect]
     Indication: HEPATITIS C
     Dosage: SEE IMAGE
     Route: 030
     Dates: start: 20031104, end: 20031109
  2. INTRON A [Suspect]
     Indication: HEPATITIS C
     Dosage: SEE IMAGE
     Route: 030
     Dates: start: 20031111, end: 20031111
  3. INTRON A [Suspect]
     Indication: HEPATITIS C
     Dosage: SEE IMAGE
     Route: 030
     Dates: start: 20031117, end: 20031216
  4. INTRON A [Suspect]
     Indication: HEPATITIS C
     Dosage: SEE IMAGE
     Route: 030
     Dates: start: 20031223, end: 20031230
  5. INTRON A [Suspect]
     Indication: HEPATITIS C
     Dosage: SEE IMAGE
     Route: 030
     Dates: start: 20031104, end: 20040108
  6. INTRON A [Suspect]
     Indication: HEPATITIS C
     Dosage: SEE IMAGE
     Route: 030
     Dates: start: 20040108, end: 20040108
  7. REBETOL [Suspect]
     Dosage: 600-400 MG QD ORAL; 600 MG QD ORAL; 400 MG QD ORAL
     Route: 048
     Dates: start: 20031104, end: 20031116
  8. REBETOL [Suspect]
     Dosage: 600-400 MG QD ORAL; 600 MG QD ORAL; 400 MG QD ORAL
     Route: 048
     Dates: start: 20031104, end: 20040108
  9. REBETOL [Suspect]
     Dosage: 600-400 MG QD ORAL; 600 MG QD ORAL; 400 MG QD ORAL
     Route: 048
     Dates: start: 20031117, end: 20040108
  10. ADALAT [Concomitant]
  11. DIOVAN [Concomitant]
  12. EUGLUCON [Concomitant]
  13. OMEPRAZOLE [Concomitant]
  14. REBAMIPIDE [Concomitant]
  15. ANTACID (NOS) [Concomitant]

REACTIONS (7)
  - CONFUSIONAL STATE [None]
  - CONVULSION [None]
  - DEPRESSED LEVEL OF CONSCIOUSNESS [None]
  - DIABETES MELLITUS INADEQUATE CONTROL [None]
  - GLUCOSE TOLERANCE DECREASED [None]
  - SALIVARY HYPERSECRETION [None]
  - SPEECH DISORDER [None]
